FAERS Safety Report 4972325-2 (Version None)
Quarter: 2006Q2

REPORT INFORMATION
  Report Type: 
  Country: None (occurrence: None)
  Receive Date: 20060413
  Receipt Date: 20060403
  Transmission Date: 20061013
  Serious: Yes (Death, Hospitalization)
  Sender: FDA-Public Use
  Company Number: FR-SANOFI-SYNTHELABO-A02200600869

PATIENT
  Age: 69 Year
  Sex: Male
  Weight: 60 kg

DRUGS (14)
  1. DEPAKENE [Suspect]
     Indication: BIPOLAR I DISORDER
     Route: 048
     Dates: start: 20051129, end: 20060217
  2. STILNOX [Suspect]
     Dosage: UNK
     Route: 048
  3. CORDARONE [Suspect]
     Indication: DRUG USE FOR UNKNOWN INDICATION
     Route: 048
     Dates: end: 20060217
  4. IDARAC [Suspect]
     Indication: DRUG USE FOR UNKNOWN INDICATION
     Route: 048
     Dates: start: 20060131, end: 20060217
  5. LAROXYL ROCHE [Suspect]
     Indication: DRUG USE FOR UNKNOWN INDICATION
     Route: 048
     Dates: start: 20060131, end: 20060217
  6. PARIET [Suspect]
     Indication: DRUG USE FOR UNKNOWN INDICATION
     Route: 048
     Dates: end: 20060217
  7. PREVISCAN [Suspect]
     Indication: MYOCARDIAL ISCHAEMIA
     Route: 048
     Dates: end: 20060217
  8. DAFALGAN [Suspect]
     Dosage: UNK
     Route: 065
  9. RIVOTRIL [Suspect]
     Dosage: UNK
     Route: 065
  10. NITRODERM [Suspect]
     Dosage: UNK
     Route: 062
  11. LANTUS [Suspect]
     Dosage: UNK
     Route: 058
  12. ATARAX [Suspect]
     Dosage: UNK
     Route: 065
  13. SMECTA [Suspect]
     Dosage: UNK
     Route: 048
  14. TRAMADOL HCL [Suspect]
     Dosage: UNK
     Route: 065

REACTIONS (1)
  - HEPATITIS FULMINANT [None]
